FAERS Safety Report 10053787 (Version 31)
Quarter: 2016Q4

REPORT INFORMATION
  Report Type: Report from Study
  Country: CA (occurrence: CA)
  Receive Date: 20140402
  Receipt Date: 20161013
  Transmission Date: 20170206
  Serious: Yes (Hospitalization, Other)
  Sender: FDA-Public Use
  Company Number: PHHY2014CA029735

PATIENT
  Age: 58 Year
  Sex: Male
  Weight: 68.48 kg

DRUGS (12)
  1. SANDOSTATIN LAR DEPOT [Suspect]
     Active Substance: OCTREOTIDE ACETATE
     Indication: CARCINOID TUMOUR
     Dosage: 20 MG, QMO (EVERY 4 WEEKS)
     Route: 030
     Dates: start: 20131209
  2. SANDOSTATIN LAR DEPOT [Suspect]
     Active Substance: OCTREOTIDE ACETATE
     Dosage: 40 MG, QMO (EVERY 4 WEEKS)
     Route: 030
     Dates: start: 20140930
  3. DILANTIN [Concomitant]
     Active Substance: PHENYTOIN
     Indication: PRODUCT USED FOR UNKNOWN INDICATION
     Route: 065
  4. BABY ASPIRIN [Concomitant]
     Active Substance: ASPIRIN
     Indication: PRODUCT USED FOR UNKNOWN INDICATION
     Route: 065
  5. PENTOXIFYLLINE. [Concomitant]
     Active Substance: PENTOXIFYLLINE
     Indication: PERIPHERAL VASCULAR DISORDER
     Dosage: 400 MG, BID
     Route: 065
     Dates: start: 20150123
  6. SANDOSTATIN LAR DEPOT [Suspect]
     Active Substance: OCTREOTIDE ACETATE
     Dosage: 40 MG, QMO (EVERY 4 WEEKS)
     Route: 030
     Dates: start: 20160822, end: 20160916
  7. SANDOSTATIN LAR DEPOT [Suspect]
     Active Substance: OCTREOTIDE ACETATE
     Dosage: 30 MG, QMO (EVERY 4 WEEKS)
     Route: 030
     Dates: start: 20150128
  8. BISOPROLOL [Concomitant]
     Active Substance: BISOPROLOL
     Indication: PRODUCT USED FOR UNKNOWN INDICATION
     Dosage: 5 MG, AT 11:00
     Route: 065
  9. PENTOXIFYLLINE. [Concomitant]
     Active Substance: PENTOXIFYLLINE
     Dosage: 400 MG, QD
     Route: 065
     Dates: start: 20150123
  10. PENTOXIFYLLINE. [Concomitant]
     Active Substance: PENTOXIFYLLINE
     Dosage: 400 MG, BID
     Route: 065
     Dates: start: 20150123
  11. ATORVASTATIN [Concomitant]
     Active Substance: ATORVASTATIN
     Indication: PRODUCT USED FOR UNKNOWN INDICATION
     Dosage: UNK
     Route: 065
  12. RAMIPRIL. [Concomitant]
     Active Substance: RAMIPRIL
     Indication: PRODUCT USED FOR UNKNOWN INDICATION
     Dosage: 10 MG, AT 2:00 AND 11:00 AM
     Route: 065

REACTIONS (46)
  - Epistaxis [Unknown]
  - Nasopharyngitis [Unknown]
  - Contusion [Unknown]
  - Haemoglobin decreased [Unknown]
  - Poor peripheral circulation [Unknown]
  - Abdominal pain [Unknown]
  - Pain [Not Recovered/Not Resolved]
  - Chest pain [Unknown]
  - Obstruction [Recovering/Resolving]
  - Weight decreased [Unknown]
  - Anal haemorrhage [Unknown]
  - Groin pain [Recovering/Resolving]
  - Pruritus [Unknown]
  - Arterial occlusive disease [Unknown]
  - Weight increased [Unknown]
  - Blood pressure systolic increased [Unknown]
  - Dyspepsia [Unknown]
  - Injection site bruising [Recovered/Resolved]
  - Constipation [Unknown]
  - Cancer pain [Unknown]
  - Diarrhoea haemorrhagic [Recovering/Resolving]
  - Oropharyngeal pain [Unknown]
  - Insomnia [Unknown]
  - Erythema [Unknown]
  - Peripheral swelling [Recovering/Resolving]
  - Proctalgia [Unknown]
  - Blood iron decreased [Unknown]
  - Change of bowel habit [Unknown]
  - Dyspnoea [Unknown]
  - Dizziness [Unknown]
  - Cerebrovascular accident [Unknown]
  - Thrombosis [Unknown]
  - Arthritis [Unknown]
  - Peripheral ischaemia [Unknown]
  - Peripheral artery occlusion [Unknown]
  - Malignant neoplasm progression [Unknown]
  - Gait disturbance [Unknown]
  - Pain in extremity [Not Recovered/Not Resolved]
  - Fatigue [Unknown]
  - Injection site pain [Unknown]
  - Dementia Alzheimer^s type [Unknown]
  - Memory impairment [Unknown]
  - Blood pressure increased [Unknown]
  - Arthralgia [Recovered/Resolved]
  - Wound infection [Recovering/Resolving]
  - Diarrhoea [Not Recovered/Not Resolved]

NARRATIVE: CASE EVENT DATE: 2014
